FAERS Safety Report 8877551 (Version 2)
Quarter: 2012Q4

REPORT INFORMATION
  Report Type: Report from Study
  Country: BR (occurrence: BR)
  Receive Date: 20121024
  Receipt Date: 20121218
  Transmission Date: 20130627
  Serious: Yes (Other)
  Sender: FDA-Public Use
  Company Number: BR-PFIZER INC-2012259108

PATIENT
  Age: 17 Year
  Sex: Female
  Weight: 63 kg

DRUGS (2)
  1. TALIGLUCERASE ALFA [Suspect]
     Indication: GAUCHER^S DISEASE
     Dosage: unspecified dose in two hours, every 15 days
     Route: 042
     Dates: start: 20120130, end: 201207
  2. EQUILID [Concomitant]
     Indication: DEPRESSION
     Dosage: UNK
     Dates: start: 201110

REACTIONS (2)
  - Tachycardia [Recovered/Resolved]
  - Dyspnoea [Recovered/Resolved]
